FAERS Safety Report 14356539 (Version 2)
Quarter: 2019Q1

REPORT INFORMATION
  Report Type: Spontaneous
  Country: FR (occurrence: FR)
  Receive Date: 20180105
  Receipt Date: 20190130
  Transmission Date: 20190417
  Serious: Yes (Hospitalization)
  Sender: FDA-Public Use
  Company Number: FR-MYLANLABS-2018M1000077

PATIENT
  Age: 54 Year
  Sex: Male
  Weight: 61 kg

DRUGS (3)
  1. BLEOMYCINE BELLON [Suspect]
     Active Substance: BLEOMYCIN SULFATE
     Indication: TESTICULAR GERM CELL CANCER METASTATIC
     Dosage: 30 MG, UNK
     Route: 042
     Dates: start: 20171120, end: 20171120
  2. ETOPOSIDE TEVA [Suspect]
     Active Substance: ETOPOSIDE
     Indication: TESTICULAR GERM CELL CANCER METASTATIC
     Dosage: 170 MILLIGRAM, QD
     Route: 042
     Dates: start: 20171120, end: 20171124
  3. CISPLATIN MYLAN [Suspect]
     Active Substance: CISPLATIN
     Indication: TESTICULAR GERM CELL CANCER METASTATIC
     Dosage: 35 MILLIGRAM, QD
     Route: 042
     Dates: start: 20171120, end: 20171124

REACTIONS (1)
  - Lung disorder [Recovered/Resolved]

NARRATIVE: CASE EVENT DATE: 20171127
